FAERS Safety Report 5968831-4 (Version None)
Quarter: 2008Q4

REPORT INFORMATION
  Report Type: 
  Country: None (occurrence: None)
  Receive Date: 20081125
  Receipt Date: 20081125
  Transmission Date: 20090506
  Serious: Yes (Hospitalization, Other)
  Sender: FDA-Public Use
  Company Number: None

PATIENT
  Age: 55 Year
  Sex: Female
  Weight: 48.0813 kg

DRUGS (1)
  1. LYRICA [Suspect]

REACTIONS (5)
  - CARDIAC FAILURE ACUTE [None]
  - DYSPNOEA [None]
  - OSTEOARTHRITIS [None]
  - TENOSYNOVITIS STENOSANS [None]
  - TRIGGER FINGER [None]
